FAERS Safety Report 4489752-2 (Version None)
Quarter: 2004Q4

REPORT INFORMATION
  Report Type: 
  Country: None (occurrence: None)
  Receive Date: 20041026
  Receipt Date: 20041013
  Transmission Date: 20050328
  Serious: Yes (Other)
  Sender: FDA-Public Use
  Company Number: 2004071043

PATIENT
  Age: 57 Year
  Sex: Female
  Weight: 101 kg

DRUGS (13)
  1. CARDURA XL [Suspect]
     Indication: HYPERTENSION
     Dosage: 4 MG (4 MG, 1 IN 1 D), ORAL
     Route: 048
     Dates: start: 20040902, end: 20040901
  2. FUROSEMIDE [Concomitant]
  3. IRBESARTAN [Concomitant]
  4. ATORVASTATIN (ATORVASTATIN) [Concomitant]
  5. SALBUTAMOL SULFATE (SALBUTAMOL SULFATE) [Concomitant]
  6. BECLOMETHASONE DIPROPIONATE [Concomitant]
  7. ALFACALCIDOL (ALFACALCIDOL) [Concomitant]
  8. SODIUM BICARBONATE IN PLASTIC CONTAINER [Concomitant]
  9. MOXONIDINE (MOXONIDINE) [Concomitant]
  10. CYCLOSPORINE [Concomitant]
  11. METOPROLOL TARTRATE [Concomitant]
  12. HYDRALAZINE HYDROCHLORIDE (HYDRALAZINE HYDROCHLORIDE) [Concomitant]
  13. FERROUS SULFATE TAB [Concomitant]

REACTIONS (6)
  - CONDITION AGGRAVATED [None]
  - DIZZINESS [None]
  - HEADACHE [None]
  - NAUSEA [None]
  - RENAL FAILURE CHRONIC [None]
  - VOMITING [None]
